FAERS Safety Report 9487002 (Version 1)
Quarter: 2013Q3

REPORT INFORMATION
  Report Type: Spontaneous
  Country: GB (occurrence: GB)
  Receive Date: 20130829
  Receipt Date: 20130829
  Transmission Date: 20140515
  Serious: Yes (Hospitalization)
  Sender: FDA-Public Use
  Company Number: GB-GLAXOSMITHKLINE-B0916999A

PATIENT
  Age: 56 Year
  Sex: Male

DRUGS (7)
  1. ACICLOVIR [Suspect]
     Dosage: 2865MG PER DAY
     Route: 042
     Dates: start: 20130808, end: 20130809
  2. ESCITALOPRAM [Concomitant]
  3. LANSOPRAZOLE [Concomitant]
  4. TAMSULOSIN [Concomitant]
  5. CHLORDIAZEPOXIDE [Concomitant]
  6. LORAZEPAM [Concomitant]
  7. CO-CODAMOL [Concomitant]

REACTIONS (1)
  - Renal failure acute [Recovered/Resolved]
